FAERS Safety Report 6294565-5 (Version None)
Quarter: 2009Q3

REPORT INFORMATION
  Report Type: 
  Country: None (occurrence: None)
  Receive Date: 20090803
  Receipt Date: 20090722
  Transmission Date: 20100115
  Serious: Yes (Other)
  Sender: FDA-Public Use
  Company Number: US-PFIZER INC-2009204929

PATIENT
  Age: 17 Year
  Sex: Female
  Weight: 34 kg

DRUGS (3)
  1. ZOLOFT [Suspect]
     Indication: OBSESSIVE-COMPULSIVE DISORDER
     Dosage: 200 MG, 1X/DAY
  2. TOPAMAX [Concomitant]
     Dosage: 25 MG, 2X/DAY
  3. TRILEPTAL [Concomitant]
     Dosage: 450 MG, 2X/DAY

REACTIONS (5)
  - BRUXISM [None]
  - CONVULSION [None]
  - DENTAL CARIES [None]
  - INTENTIONAL SELF-INJURY [None]
  - STRESS [None]
